FAERS Safety Report 6971690-4 (Version None)
Quarter: 2010Q3

REPORT INFORMATION
  Report Type: 
  Country: None (occurrence: None)
  Receive Date: 20100908
  Receipt Date: 20100106
  Transmission Date: 20110219
  Serious: No
  Sender: FDA-Public Use
  Company Number: US-PFIZER INC-2010002916

PATIENT
  Sex: Male

DRUGS (2)
  1. NARDIL [Suspect]
     Indication: DEPRESSION
     Dosage: UNK
     Route: 048
  2. DARVOCET [Interacting]
     Dosage: UNK

REACTIONS (2)
  - DRUG INTERACTION [None]
  - SURGERY [None]
